FAERS Safety Report 25270327 (Version 2)
Quarter: 2025Q2

REPORT INFORMATION
  Report Type: Spontaneous
  Country: CN (occurrence: CN)
  Receive Date: 20250505
  Receipt Date: 20250527
  Transmission Date: 20250717
  Serious: Yes (Other)
  Sender: SLATE RUN
  Company Number: CN-SLATERUN-2025SRLIT00049

PATIENT
  Age: 67 Year
  Sex: Female

DRUGS (2)
  1. DILTIAZEM [Suspect]
     Active Substance: DILTIAZEM
     Indication: Supraventricular tachycardia
     Route: 065
  2. AMINOPHYLLINE\CHLORPHENIRAMINE MALEATE\METHOXYPHENAMINE HYDROCHLORIDE\ [Suspect]
     Active Substance: AMINOPHYLLINE\CHLORPHENIRAMINE MALEATE\METHOXYPHENAMINE HYDROCHLORIDE\NOSCAPINE
     Indication: Cough
     Dosage: METHOXYPHENAMINE12.5 MG, NOSCAPINE 7 MG, AMINOPHYLLINE 25 MG, CHLORPHENIRAMINE 2 MG
     Route: 065
     Dates: start: 20240217

REACTIONS (2)
  - Angina pectoris [Recovered/Resolved]
  - Drug interaction [Unknown]

NARRATIVE: CASE EVENT DATE: 20240217
